FAERS Safety Report 20052947 (Version 4)
Quarter: 2022Q1

REPORT INFORMATION
  Report Type: Report from Study
  Country: CA (occurrence: CA)
  Receive Date: 20211110
  Receipt Date: 20220324
  Transmission Date: 20220424
  Serious: Yes (Life-Threatening, Hospitalization, Other)
  Sender: FDA-Public Use
  Company Number: CA-NOVARTISPH-NVSC2021CA255359

PATIENT
  Age: 5 Year
  Sex: Male
  Weight: 14 kg

DRUGS (2)
  1. ZYKADIA [Suspect]
     Active Substance: CERITINIB
     Indication: Glioma
     Dosage: 180 MG, QD
     Route: 048
     Dates: start: 201912, end: 20211104
  2. ZYKADIA [Suspect]
     Active Substance: CERITINIB
     Indication: Anaplastic lymphoma kinase gene mutation
     Dosage: 300 MG/M2, QD
     Route: 048
     Dates: start: 201912, end: 20211103

REACTIONS (4)
  - Hepatic failure [Unknown]
  - Hepatic enzyme increased [Recovered/Resolved]
  - Nausea [Recovered/Resolved]
  - Hepatitis [Recovered/Resolved]

NARRATIVE: CASE EVENT DATE: 20211103
